FAERS Safety Report 5994028-8 (Version None)
Quarter: 2008Q4

REPORT INFORMATION
  Report Type: 
  Country: None (occurrence: None)
  Receive Date: 20081212
  Receipt Date: 20081017
  Transmission Date: 20090506
  Serious: No
  Sender: FDA-Public Use
  Company Number: US-ABBOTT-08P-163-0471930-00

PATIENT
  Sex: Female
  Weight: 77.18 kg

DRUGS (6)
  1. HUMIRA [Suspect]
     Indication: PSORIASIS
     Route: 058
     Dates: start: 20080709
  2. HUMIRA [Suspect]
     Dosage: ONE WEEK LATER
     Route: 058
  3. HUMIRA [Suspect]
     Route: 058
  4. RANITIDINE [Concomitant]
     Indication: GASTROOESOPHAGEAL REFLUX DISEASE
     Route: 048
     Dates: start: 19980101
  5. METOCLOPRAMIDE [Concomitant]
     Indication: GASTROOESOPHAGEAL REFLUX DISEASE
     Route: 048
     Dates: start: 19980101
  6. OMEPRAZOLE [Concomitant]
     Indication: GASTROOESOPHAGEAL REFLUX DISEASE
     Route: 048
     Dates: start: 19980101

REACTIONS (7)
  - ALOPECIA [None]
  - DERMATITIS CONTACT [None]
  - INJECTION SITE PAIN [None]
  - PRURITUS [None]
  - PRURITUS GENERALISED [None]
  - PSORIASIS [None]
  - SKIN EXFOLIATION [None]
